FAERS Safety Report 6304308-4 (Version None)
Quarter: 2009Q3

REPORT INFORMATION
  Report Type: 
  Country: None (occurrence: None)
  Receive Date: 20090811
  Receipt Date: 20090803
  Transmission Date: 20100115
  Serious: Yes (Hospitalization)
  Sender: FDA-Public Use
  Company Number: CZ-SP-2009-03374

PATIENT
  Age: 73 Year
  Sex: Male

DRUGS (3)
  1. IMMUCYST [Suspect]
     Indication: BLADDER CANCER
     Route: 043
     Dates: start: 20090316, end: 20090601
  2. BENEMICIN [Concomitant]
     Route: 048
  3. ZANOCIN [Concomitant]
     Route: 048

REACTIONS (1)
  - EPIDIDYMITIS [None]
